FAERS Safety Report 9494078 (Version 1)
Quarter: 2013Q3

REPORT INFORMATION
  Report Type: Spontaneous
  Country: US (occurrence: None)
  Receive Date: 20130829
  Receipt Date: 20130829
  Transmission Date: 20140515
  Serious: Yes (Hospitalization)
  Sender: FDA-Public Use
  Company Number: None

PATIENT
  Age: 72 Year
  Sex: Male
  Weight: 72.58 kg

DRUGS (2)
  1. SUNITINIB [Suspect]
     Indication: LEIOMYOSARCOMA METASTATIC
     Dosage: 37.5 MG DAILY  PO
     Route: 048
     Dates: start: 20130821, end: 20130825
  2. IXABEPILONE [Suspect]
     Indication: LEIOMYOSARCOMA METASTATIC
     Dosage: 29 MG WEEKLY IV
     Route: 042
     Dates: start: 20130814

REACTIONS (3)
  - Nausea [None]
  - Vomiting [None]
  - Drug intolerance [None]
